FAERS Safety Report 4590406-2 (Version None)
Quarter: 2005Q1

REPORT INFORMATION
  Report Type: 
  Country: None (occurrence: None)
  Receive Date: 20050224
  Receipt Date: 20050215
  Transmission Date: 20050727
  Serious: Yes (Life-Threatening, Hospitalization)
  Sender: FDA-Public Use
  Company Number: JP-JNJFOC-20041200936

PATIENT
  Sex: Female

DRUGS (12)
  1. RISPERDAL [Suspect]
     Route: 049
  2. RISPERDAL [Suspect]
     Indication: SCHIZOPHRENIA
     Route: 049
  3. HALOMONTH [Suspect]
     Indication: SCHIZOPHRENIA
  4. OLANZAPINE [Suspect]
     Route: 049
  5. OLANZAPINE [Suspect]
     Indication: SCHIZOPHRENIA
     Route: 049
  6. CIMETIDINE [Concomitant]
     Indication: HEPATIC CIRRHOSIS
  7. BIPERIDEN HYDROCHLORIDE TAB [Concomitant]
     Indication: SCHIZOPHRENIA
  8. ISOLEUCINE LEUCINE VALINE [Concomitant]
     Indication: HEPATIC CIRRHOSIS
  9. FLUNITRAZEPAM [Concomitant]
     Indication: SCHIZOPHRENIA
  10. ZOPICLONE [Concomitant]
     Indication: SCHIZOPHRENIA
  11. SENNOSIDE [Concomitant]
     Indication: HEPATIC CIRRHOSIS
  12. ASPARTATE POTASSIUM [Concomitant]
     Indication: HEPATIC CIRRHOSIS

REACTIONS (2)
  - CARDIAC FAILURE ACUTE [None]
  - NEUROLEPTIC MALIGNANT SYNDROME [None]
